FAERS Safety Report 25469657 (Version 1)
Quarter: 2025Q2

REPORT INFORMATION
  Report Type: Spontaneous
  Country: US (occurrence: US)
  Receive Date: 20250623
  Receipt Date: 20250623
  Transmission Date: 20250716
  Serious: No
  Sender: UPSHER SMITH LABORATORIES
  Company Number: US-UPSHER-SMITH LABORATORIES, LLC-20240900154

PATIENT

DRUGS (3)
  1. VOGELXO [Suspect]
     Active Substance: TESTOSTERONE
     Indication: Menopause
     Route: 061
  2. PROGESTERONE [Concomitant]
     Active Substance: PROGESTERONE
     Indication: Product used for unknown indication
     Route: 065
  3. ESTRADIOL TRANSDERMAL SYSTEM [Concomitant]
     Active Substance: ESTRADIOL
     Indication: Product used for unknown indication
     Route: 065

REACTIONS (4)
  - Malaise [Unknown]
  - Blood testosterone decreased [Unknown]
  - Product physical issue [Unknown]
  - Product administered at inappropriate site [Unknown]
